FAERS Safety Report 8377563-7 (Version None)
Quarter: 2012Q2

REPORT INFORMATION
  Report Type: 
  Country: None (occurrence: None)
  Receive Date: 20120522
  Receipt Date: 20120521
  Transmission Date: 20120825
  Serious: Yes (Other)
  Sender: FDA-Public Use
  Company Number: RU-PFIZER INC-2010145321

PATIENT
  Age: 80 Year
  Sex: Female

DRUGS (6)
  1. ARIFON RETARD [Concomitant]
     Indication: HYPERTENSION
     Route: 048
  2. LYRICA [Suspect]
     Indication: NEUROPATHY PERIPHERAL
     Dosage: 75 MG, 1X/DAY
     Route: 048
     Dates: start: 20090310, end: 20090325
  3. NIFECARD XL [Concomitant]
     Indication: MYOCARDIAL ISCHAEMIA
     Dosage: 30 MG, 2X/DAY
     Route: 048
  4. ENALAPRIL MALEATE AND HYDROCHLOROTHIAZIDE [Concomitant]
     Indication: HYPERTENSION
     Dosage: 20/12.5 MG ONCE DAILY IN THE MORNING
     Route: 048
  5. ENALAPRIL MALEATE [Concomitant]
     Indication: HYPERTENSION
     Dosage: 20 MG, 1X/DAY, IN THE EVENING
     Route: 048
  6. SOTALOL HCL [Concomitant]
     Indication: ARRHYTHMIA
     Dosage: 80 MG, 2X/DAY
     Route: 048

REACTIONS (2)
  - ATRIAL FIBRILLATION [None]
  - BLOOD PRESSURE INCREASED [None]
